FAERS Safety Report 15085142 (Version 1)
Quarter: 2018Q2

REPORT INFORMATION
  Report Type: Spontaneous
  Country: US (occurrence: US)
  Receive Date: 20180628
  Receipt Date: 20180628
  Transmission Date: 20180711
  Serious: No
  Sender: FDA-Public Use
  Company Number: US-VIFOR (INTERNATIONAL) INC.-VIT-2018-04257

PATIENT
  Age: 40 Year
  Sex: Female
  Weight: 61 kg

DRUGS (18)
  1. VELTASSA [Suspect]
     Active Substance: PATIROMER
     Route: 048
     Dates: start: 2018
  2. SODIUM BICARBONATE. [Concomitant]
     Active Substance: SODIUM BICARBONATE
     Route: 048
  3. VELTASSA [Suspect]
     Active Substance: PATIROMER
     Indication: BLOOD POTASSIUM INCREASED
     Route: 048
     Dates: start: 201805
  4. CALCIUM ACETATE. [Concomitant]
     Active Substance: CALCIUM ACETATE
     Dosage: 1 CAPSULE BY MOUTH THREE TIMES A DAY WITH MEALS TWO CAPSULE WITH SNACKS
     Route: 048
  5. SENSIPAR [Concomitant]
     Active Substance: CINACALCET HYDROCHLORIDE
     Dosage: WITH MEALS
     Route: 048
  6. FMLA [Concomitant]
     Dosage: LIDOCAINE 2.5 - PRILOCAINE 2.5 %, APPLY 1 A SMALL AMOUNT TO SKIN AS DIRECTED APPLY TO AVF PRIOR TO D
  7. GENTAMICIN. [Concomitant]
     Active Substance: GENTAMICIN
  8. METOPROLOL TARTRATE. [Concomitant]
     Active Substance: METOPROLOL TARTRATE
     Dosage: HALF TABLET
     Route: 048
  9. XANAX [Concomitant]
     Active Substance: ALPRAZOLAM
     Dosage: AT BED TIME
     Route: 048
  10. ATORVASTATIN CALCIUM. [Concomitant]
     Active Substance: ATORVASTATIN CALCIUM
     Route: 048
  11. LOSARTAN. [Concomitant]
     Active Substance: LOSARTAN
     Dosage: AT BED TIME
     Route: 048
  12. RENVELA [Concomitant]
     Active Substance: SEVELAMER CARBONATE
     Dosage: WITH MEAL ONE TABLET WITH SNACKS
     Route: 048
  13. LYRICA [Concomitant]
     Active Substance: PREGABALIN
     Dosage: EVERY EVENING
     Route: 048
  14. TOCOPHEROL [Concomitant]
     Active Substance: TOCOPHEROL
     Route: 048
  15. COUMADIN [Concomitant]
     Active Substance: WARFARIN SODIUM
     Dosage: AS DIRECTED MON, WED, FRI, SAT, SUN 6 MG, TUES, THURS 3 MG
     Route: 048
  16. THIAMAZOLE [Concomitant]
     Active Substance: METHIMAZOLE
     Route: 048
  17. NORCO [Concomitant]
     Active Substance: ACETAMINOPHEN\HYDROCODONE BITARTRATE
     Dosage: HYDROCODONE 5 MG - ACETAMINOPHEN 325 MG
     Route: 048
  18. RENAL [Concomitant]
     Route: 048

REACTIONS (3)
  - Product physical issue [Recovered/Resolved]
  - Off label use [Unknown]
  - No adverse event [Unknown]

NARRATIVE: CASE EVENT DATE: 201805
